FAERS Safety Report 11979446 (Version 1)
Quarter: 2016Q1

REPORT INFORMATION
  Report Type: Other
  Country: CA (occurrence: CA)
  Receive Date: 20160129
  Receipt Date: 20160129
  Transmission Date: 20160526
  Serious: Yes (Other)
  Sender: FDA-Public Use
  Company Number: CA-COL_21877_2016

PATIENT
  Sex: Female

DRUGS (2)
  1. TOM^S DEODORANT STICK NATURAL LONG LASTING BEAUTIFUL EARTH [Suspect]
     Active Substance: COSMETICS
     Dosage: 3 SWIPES OF THE PRODUCT TO EACH UNDERARM/ TWICE A DAY/
     Route: 061
     Dates: start: 201512, end: 20160108
  2. CORTISONE CREAM W/LAMISIL CREAM [Suspect]
     Active Substance: CORTISONE\TERBINAFINE HYDROCHLORIDE
     Indication: RASH
     Dosage: NI/NI/
     Route: 061
     Dates: start: 20160108

REACTIONS (17)
  - Axillary pain [Recovering/Resolving]
  - Erythema [Recovered/Resolved]
  - Skin discolouration [Recovering/Resolving]
  - Application site erythema [None]
  - Application site rash [None]
  - Application site urticaria [None]
  - Application site discolouration [None]
  - Pruritus [Not Recovered/Not Resolved]
  - Urticaria [Recovered/Resolved]
  - Impaired work ability [Recovering/Resolving]
  - Application site pruritus [None]
  - Hypersensitivity [Recovering/Resolving]
  - Hyperhidrosis [Recovering/Resolving]
  - Swelling face [Recovered/Resolved]
  - Eye swelling [Recovered/Resolved]
  - Rash [Recovered/Resolved]
  - Incorrect drug administration duration [None]

NARRATIVE: CASE EVENT DATE: 201512
